FAERS Safety Report 4325328-5 (Version None)
Quarter: 2004Q1

REPORT INFORMATION
  Report Type: 
  Country: None (occurrence: None)
  Receive Date: 20040326
  Receipt Date: 20040326
  Transmission Date: 20041129
  Serious: Yes (Other)
  Sender: FDA-Public Use
  Company Number: None

PATIENT
  Sex: Female
  Weight: 56.6996 kg

DRUGS (1)
  1. CIPROFLOXACIN [Suspect]
     Indication: POISONING
     Dosage: 500 MG BID ORAL
     Route: 048
     Dates: start: 20020508, end: 20020513

REACTIONS (1)
  - ANXIETY [None]
